FAERS Safety Report 25136053 (Version 1)
Quarter: 2025Q1

REPORT INFORMATION
  Report Type: Report from Study
  Country: US (occurrence: US)
  Receive Date: 20250328
  Receipt Date: 20250328
  Transmission Date: 20250409
  Serious: Yes (Other)
  Sender: ALEXION PHARMACEUTICALS
  Company Number: US-AstraZeneca-CH-00833285A

PATIENT

DRUGS (1)
  1. BUDESONIDE\FORMOTEROL\GLYCOPYRRONIUM [Suspect]
     Active Substance: BUDESONIDE\FORMOTEROL\GLYCOPYRRONIUM
     Route: 065

REACTIONS (7)
  - Type 1 diabetes mellitus [Unknown]
  - Lipids abnormal [Unknown]
  - Diabetic retinopathy [Unknown]
  - Diabetic neuropathy [Unknown]
  - Myalgia [Unknown]
  - Peripheral arterial occlusive disease [Unknown]
  - Chronic obstructive pulmonary disease [Unknown]
